FAERS Safety Report 13326011 (Version 1)
Quarter: 2017Q1

REPORT INFORMATION
  Report Type: Spontaneous
  Country: IT (occurrence: IT)
  Receive Date: 20170310
  Receipt Date: 20170310
  Transmission Date: 20170428
  Serious: Yes (Other)
  Sender: FDA-Public Use
  Company Number: IT-BAUSCH-BL-2017-006492

PATIENT
  Age: 74 Year
  Sex: Female

DRUGS (1)
  1. MACUGEN [Suspect]
     Active Substance: PEGAPTANIB SODIUM
     Indication: AGE-RELATED MACULAR DEGENERATION
     Route: 031
     Dates: start: 20161021, end: 20161216

REACTIONS (1)
  - Drug ineffective [Unknown]

NARRATIVE: CASE EVENT DATE: 20170222
